FAERS Safety Report 11038356 (Version 1)
Quarter: 2015Q2

REPORT INFORMATION
  Report Type: Spontaneous
  Country: US (occurrence: US)
  Receive Date: 20150416
  Receipt Date: 20150416
  Transmission Date: 20150821
  Serious: No
  Sender: FDA-Public Use
  Company Number: US-BAYER-2015-135937

PATIENT
  Age: 13 Year
  Sex: Female
  Weight: 61 kg

DRUGS (3)
  1. CLARITIN [Suspect]
     Active Substance: LORATADINE
     Dosage: 2 DF, ONCE
     Dates: start: 20150412, end: 20150412
  2. CLARITIN [Suspect]
     Active Substance: LORATADINE
     Dosage: 1 DF, ONCE
     Dates: start: 20150411, end: 20150411
  3. CLARITIN [Suspect]
     Active Substance: LORATADINE
     Dosage: UNK

REACTIONS (2)
  - Expired product administered [None]
  - Extra dose administered [None]

NARRATIVE: CASE EVENT DATE: 20150412
